FAERS Safety Report 9069980 (Version 1)
Quarter: 2013Q1

REPORT INFORMATION
  Report Type: Report from Study
  Country: US (occurrence: US)
  Receive Date: 20130129
  Receipt Date: 20130129
  Transmission Date: 20140127
  Serious: No
  Sender: FDA-Public Use
  Company Number: US-ABBOTT-12P-163-0936528-00

PATIENT
  Sex: Female
  Weight: 69.01 kg

DRUGS (14)
  1. HUMIRA 40 MG/0.8 ML PEN [Suspect]
     Indication: RHEUMATOID ARTHRITIS
     Route: 058
     Dates: start: 2009
  2. METHOTREXATE [Concomitant]
     Indication: RHEUMATOID ARTHRITIS
  3. PLAQUENIL [Concomitant]
     Indication: RHEUMATOID ARTHRITIS
  4. POTASSIUM [Concomitant]
     Indication: MINERAL SUPPLEMENTATION
  5. CARDIZEM [Concomitant]
     Indication: BLOOD PRESSURE
  6. FOLIC ACID [Concomitant]
     Indication: VITAMIN SUPPLEMENTATION
  7. HCTZ [Concomitant]
     Indication: BLOOD PRESSURE
  8. WELLBUTRIN [Concomitant]
     Indication: PRODUCT USED FOR UNKNOWN INDICATION
  9. CYMBALTA [Concomitant]
     Indication: FIBROMYALGIA
  10. SOMA [Concomitant]
     Indication: MUSCLE SPASMS
  11. ACIPHEX [Concomitant]
     Indication: GASTROOESOPHAGEAL REFLUX DISEASE
  12. SINGULAIR [Concomitant]
     Indication: PRODUCT USED FOR UNKNOWN INDICATION
  13. LISINOPRIL [Concomitant]
     Indication: BLOOD PRESSURE
  14. ADVAIR [Concomitant]
     Indication: ASTHMA

REACTIONS (2)
  - Rheumatoid arthritis [Recovered/Resolved]
  - Rheumatoid arthritis [Recovered/Resolved]
